FAERS Safety Report 13082183 (Version 1)
Quarter: 2017Q1

REPORT INFORMATION
  Report Type: Spontaneous
  Country: US (occurrence: US)
  Receive Date: 20170103
  Receipt Date: 20170103
  Transmission Date: 20170428
  Serious: No
  Sender: FDA-Public Use
  Company Number: US-PFIZER INC-2016253387

PATIENT
  Age: 59 Year
  Sex: Female
  Weight: 116 kg

DRUGS (23)
  1. IBRANCE [Suspect]
     Active Substance: PALBOCICLIB
     Indication: BREAST CANCER METASTATIC
     Dosage: 125 MG, CYCLIC 21 DAYS ON/ 7 DAYS OFF)
  2. OXYCODONE [Concomitant]
     Active Substance: OXYCODONE
     Dosage: 10 MG
  3. XANAX [Concomitant]
     Active Substance: ALPRAZOLAM
     Indication: SLEEP DISORDER
     Dosage: 0.5 MG, AS NEEDED (NIGHTLY)
     Route: 048
  4. ZANAFLEX [Concomitant]
     Active Substance: TIZANIDINE HYDROCHLORIDE
     Dosage: 2 MG, AS NEEDED (EVERY 8 HOURS)
     Route: 048
  5. ZOFRAN [Concomitant]
     Active Substance: ONDANSETRON HYDROCHLORIDE
     Indication: NAUSEA
     Dosage: 8 MG, AS NEEDED (EVERY 8 HOURS)
     Route: 048
  6. NOVOLIN N [Concomitant]
     Active Substance: INSULIN HUMAN
     Dosage: UNK
  7. HUMULIN N [Concomitant]
     Active Substance: INSULIN HUMAN
     Dosage: UNK
  8. ARIMIDEX [Concomitant]
     Active Substance: ANASTROZOLE
     Dosage: 1 DF, DAILY
  9. GLUCOPHAGE XR [Concomitant]
     Active Substance: METFORMIN HYDROCHLORIDE
     Dosage: 2 DF, 2X/DAY
     Route: 048
  10. LIPITOR [Concomitant]
     Active Substance: ATORVASTATIN CALCIUM
     Dosage: 10 MG, UNK
  11. XANAX [Concomitant]
     Active Substance: ALPRAZOLAM
     Indication: ANXIETY
  12. FLONASE [Concomitant]
     Active Substance: FLUTICASONE PROPIONATE
     Dosage: 2 DF, 1X/DAY (50 MCG/ACT NASAL SPRAY)
     Route: 055
  13. IBRANCE [Suspect]
     Active Substance: PALBOCICLIB
     Dosage: 125 MG, CYCLIC [DAILY ON DAYS 1-21 OF EACH 28 DAY CYCLE]
     Route: 048
  14. ZOFRAN [Concomitant]
     Active Substance: ONDANSETRON HYDROCHLORIDE
     Indication: VOMITING
  15. VALTREX [Concomitant]
     Active Substance: VALACYCLOVIR HYDROCHLORIDE
     Dosage: 1 G, 3X/DAY (DAILY FOR 7 DAYS)
     Route: 048
  16. CELEXA [Concomitant]
     Active Substance: CITALOPRAM HYDROBROMIDE
     Dosage: 1 AND 1/2 TABLETS, 1X/DAY
     Route: 048
  17. NEURONTIN [Concomitant]
     Active Substance: GABAPENTIN
     Dosage: 2 DF, 3X/DAY
  18. PAMELOR [Concomitant]
     Active Substance: NORTRIPTYLINE HYDROCHLORIDE
     Dosage: 10 MG, 1X/DAY (NIGHTLY)
     Route: 048
  19. SAVELLA [Concomitant]
     Active Substance: MILNACIPRAN HYDROCHLORIDE
     Dosage: UNK
  20. ASPIRIN. [Concomitant]
     Active Substance: ASPIRIN
     Dosage: 81 MG, UNK
  21. CLARITIN [Concomitant]
     Active Substance: LORATADINE
     Dosage: 10 MG, DAILY
     Route: 048
  22. MUCINEX D [Concomitant]
     Active Substance: GUAIFENESIN\PSEUDOEPHEDRINE HYDROCHLORIDE
     Dosage: UNK
     Route: 048
  23. LOZOL [Concomitant]
     Active Substance: INDAPAMIDE
     Dosage: 1.25 MG, 1X/DAY (EVERY MORNING)
     Route: 048

REACTIONS (2)
  - Incorrect drug administration duration [Unknown]
  - Herpes zoster [Unknown]
